FAERS Safety Report 21279201 (Version 2)
Quarter: 2022Q3

REPORT INFORMATION
  Report Type: Report from Study
  Country: FR (occurrence: FR)
  Receive Date: 20220901
  Receipt Date: 20220921
  Transmission Date: 20221027
  Serious: Yes (Hospitalization, Other)
  Sender: FDA-Public Use
  Company Number: FR-TAKEDA-2022TUS056218

PATIENT
  Age: 34 Year
  Sex: Male

DRUGS (2)
  1. HUMAN IMMUNOGLOBULIN G [Suspect]
     Active Substance: HUMAN IMMUNOGLOBULIN G
     Indication: Primary immunodeficiency syndrome
     Dosage: 20 GRAM, MONTHLY
     Route: 042
  2. HUMAN IMMUNOGLOBULIN G [Suspect]
     Active Substance: HUMAN IMMUNOGLOBULIN G
     Indication: Primary immunodeficiency syndrome
     Dosage: 20 GRAM, MONTHLY
     Route: 042

REACTIONS (16)
  - Ear, nose and throat infection [Unknown]
  - Hallucination [Unknown]
  - Hand fracture [Unknown]
  - Fatigue [Unknown]
  - Myalgia [Unknown]
  - Asthenia [Recovered/Resolved]
  - Insomnia [Unknown]
  - Polymers allergy [Unknown]
  - Pruritus [Unknown]
  - Poor venous access [Unknown]
  - Hunger [Unknown]
  - Fear of injection [Unknown]
  - Osteoarthritis [Unknown]
  - Hypersensitivity [Unknown]
  - Product supply issue [Unknown]
  - Product availability issue [Unknown]
